FAERS Safety Report 9742694 (Version 1)
Quarter: 2013Q4

REPORT INFORMATION
  Report Type: Spontaneous
  Country: US (occurrence: US)
  Receive Date: 20131210
  Receipt Date: 20131210
  Transmission Date: 20140711
  Serious: No
  Sender: FDA-Public Use
  Company Number: US-GILEAD-2009-0025717

PATIENT
  Sex: Male
  Weight: 81.65 kg

DRUGS (11)
  1. LETAIRIS [Suspect]
     Indication: PULMONARY ARTERIAL HYPERTENSION
     Route: 048
     Dates: start: 20080805
  2. REVATIO [Concomitant]
  3. COENZYME Q10 [Concomitant]
  4. SELENIUM [Concomitant]
  5. FOLIC ACID [Concomitant]
  6. FUROSEMIDE [Concomitant]
  7. MULTIVITAMIN [Concomitant]
  8. MILK THISTLE [Concomitant]
  9. INDERAL [Concomitant]
  10. PREVACID [Concomitant]
  11. VITAMIN B12 [Concomitant]

REACTIONS (1)
  - Pancreatitis [Unknown]
